FAERS Safety Report 25709506 (Version 1)
Quarter: 2025Q3

REPORT INFORMATION
  Report Type: Report from Study
  Country: US (occurrence: US)
  Receive Date: 20250821
  Receipt Date: 20250821
  Transmission Date: 20251020
  Serious: No
  Sender: SUNOVION
  Company Number: US-SUMITOMO PHARMA SWITZERLAND GMBH-2025SPA010541

PATIENT
  Age: 84 Year
  Sex: Male

DRUGS (13)
  1. ORGOVYX [Suspect]
     Active Substance: RELUGOLIX
     Indication: Prostate cancer
     Route: 048
  2. ORGOVYX [Suspect]
     Active Substance: RELUGOLIX
     Route: 048
  3. ACETAMINOPHEN [Concomitant]
     Active Substance: ACETAMINOPHEN
  4. BICALUTAMIDE [Concomitant]
     Active Substance: BICALUTAMIDE
  5. CIALIS [Concomitant]
     Active Substance: TADALAFIL
  6. DOXYCYCLINE [Concomitant]
     Active Substance: DOXYCYCLINE
  7. LEVOTHYROXINE [Concomitant]
     Active Substance: LEVOTHYROXINE
  8. LIPITOR [Concomitant]
     Active Substance: ATORVASTATIN CALCIUM
  9. MYRBETRIQ [Concomitant]
     Active Substance: MIRABEGRON
  10. RAMIPRIL [Concomitant]
     Active Substance: RAMIPRIL
  11. REPATHA [Concomitant]
     Active Substance: EVOLOCUMAB
  12. SILODOSIN [Concomitant]
     Active Substance: SILODOSIN
  13. VITAMIN C [Concomitant]
     Active Substance: ASCORBIC ACID

REACTIONS (1)
  - Fatigue [Unknown]
